FAERS Safety Report 9261370 (Version 1)
Quarter: 2013Q2

REPORT INFORMATION
  Report Type: Spontaneous
  Country: US (occurrence: US)
  Receive Date: 20130429
  Receipt Date: 20130429
  Transmission Date: 20140414
  Serious: Yes (Other)
  Sender: FDA-Public Use
  Company Number: US-PFIZER INC-2013130365

PATIENT
  Age: 57 Year
  Sex: Male
  Weight: 86.17 kg

DRUGS (1)
  1. SOLU-MEDROL [Suspect]
     Indication: PHARYNGITIS
     Dosage: 125 MG, UNK
     Route: 030

REACTIONS (4)
  - Loss of consciousness [Unknown]
  - Flushing [Unknown]
  - Blood pressure decreased [Unknown]
  - Dehydration [Unknown]
